FAERS Safety Report 4326600-5 (Version None)
Quarter: 2004Q1

REPORT INFORMATION
  Report Type: 
  Country: None (occurrence: None)
  Receive Date: 20040330
  Receipt Date: 20040319
  Transmission Date: 20041129
  Serious: Yes (Hospitalization)
  Sender: FDA-Public Use
  Company Number: PHRM2004FR01313

PATIENT
  Age: 55 Year
  Sex: Male

DRUGS (6)
  1. LAMISIL [Suspect]
     Indication: SKIN LESION
     Route: 048
     Dates: start: 20031202, end: 20031210
  2. INDAPAMIDE [Concomitant]
     Route: 048
  3. DIFFU K [Concomitant]
     Route: 048
  4. ALLOPURINOL [Concomitant]
     Route: 048
  5. CELECTOL [Concomitant]
     Route: 048
  6. FENOFIBRATE [Concomitant]
     Route: 048

REACTIONS (6)
  - DERMATITIS EXFOLIATIVE [None]
  - ECZEMA [None]
  - ERYTHEMA [None]
  - PRURITUS [None]
  - RASH GENERALISED [None]
  - SKIN LESION [None]
